FAERS Safety Report 20706329 (Version 1)
Quarter: 2022Q2

REPORT INFORMATION
  Report Type: Spontaneous
  Country: US (occurrence: None)
  Receive Date: 20220413
  Receipt Date: 20220413
  Transmission Date: 20220721
  Serious: No
  Sender: FDA-Public Use
  Company Number: None

PATIENT
  Age: 41 Year
  Sex: Female

DRUGS (3)
  1. APLISOL [Suspect]
     Active Substance: TUBERCULIN PURIFIED PROTEIN DERIVATIVE
     Indication: Tuberculosis
     Dosage: OTHER FREQUENCY : ONCE;?
     Route: 023
     Dates: start: 20220406, end: 20220406
  2. APLISOL [Suspect]
     Active Substance: TUBERCULIN PURIFIED PROTEIN DERIVATIVE
     Indication: Investigation
  3. Apisol [Concomitant]
     Dates: start: 20220406, end: 20220406

REACTIONS (2)
  - Irritability [None]
  - Tremor [None]

NARRATIVE: CASE EVENT DATE: 20220406
